FAERS Safety Report 14138936 (Version 1)
Quarter: 2017Q4

REPORT INFORMATION
  Report Type: Report from Study
  Country: AE (occurrence: AE)
  Receive Date: 20171027
  Receipt Date: 20171027
  Transmission Date: 20180321
  Serious: Yes (Other)
  Sender: FDA-Public Use
  Company Number: AE-SHIRE-AE201726361

PATIENT

DRUGS (1)
  1. VPRIV [Suspect]
     Active Substance: VELAGLUCERASE ALFA
     Indication: GAUCHER^S DISEASE
     Dosage: 1200 (35/KG) - 2000 (60/KG) IU, 1X/2WKS
     Route: 042
     Dates: start: 20161221, end: 20170705

REACTIONS (6)
  - Ichthyosis [Unknown]
  - Asthenia [Unknown]
  - Periorbital disorder [Unknown]
  - Drug ineffective [Unknown]
  - Headache [Unknown]
  - Nasal congestion [Unknown]

NARRATIVE: CASE EVENT DATE: 20170103
